FAERS Safety Report 6743455-X (Version None)
Quarter: 2010Q2

REPORT INFORMATION
  Report Type: 
  Country: None (occurrence: None)
  Receive Date: 20100527
  Receipt Date: 20100514
  Transmission Date: 20101027
  Serious: Yes (Other)
  Sender: FDA-Public Use
  Company Number: NZ-MYLANLABS-2010S1008500

PATIENT
  Sex: Male

DRUGS (8)
  1. ATENOLOL [Suspect]
     Indication: BLOOD PRESSURE
     Route: 048
  2. ATENOLOL [Suspect]
     Route: 048
  3. ASPIRIN [Concomitant]
     Indication: ANTIPLATELET THERAPY
  4. SIMVASTATIN [Concomitant]
     Indication: BLOOD CHOLESTEROL
     Route: 048
  5. INHIBACE /00498401/ [Concomitant]
     Indication: DRUG USE FOR UNKNOWN INDICATION
     Route: 048
  6. DIPYRIDAMOLE [Concomitant]
     Indication: DRUG USE FOR UNKNOWN INDICATION
     Route: 048
  7. MULTI-VITAMIN [Concomitant]
     Route: 048
  8. LOTEN /00422901/ [Concomitant]
     Indication: BLOOD PRESSURE
     Dosage: SWITCHED TO PACIFIC ATENOLOL

REACTIONS (3)
  - BLOOD PRESSURE INCREASED [None]
  - DRUG INEFFECTIVE [None]
  - TREMOR [None]
